FAERS Safety Report 8264772-0 (Version None)
Quarter: 2012Q2

REPORT INFORMATION
  Report Type: 
  Country: None (occurrence: None)
  Receive Date: 20120406
  Receipt Date: 20120327
  Transmission Date: 20120825
  Serious: Yes (Other)
  Sender: FDA-Public Use
  Company Number: NL-BRISTOL-MYERS SQUIBB COMPANY-16498784

PATIENT
  Age: 48 Year
  Sex: Male
  Weight: 85 kg

DRUGS (1)
  1. IRBESARTAN + HYDROCHLOROTHIAZIDE [Suspect]
     Dosage: 1 TAB/DAY LATENCY FOR 4 YEARS
     Route: 048
     Dates: start: 20050101, end: 20120201

REACTIONS (1)
  - MYOPATHY [None]
